FAERS Safety Report 8332879-5 (Version None)
Quarter: 2012Q1

REPORT INFORMATION
  Report Type: 
  Country: None (occurrence: None)
  Receive Date: 20120327
  Receipt Date: 20110110
  Transmission Date: 20120608
  Serious: Yes (Other)
  Sender: FDA-Public Use
  Company Number: PHEH2009US15559

PATIENT
  Sex: Female

DRUGS (12)
  1. NORVASC [Concomitant]
  2. GLEEVEC [Suspect]
     Dosage: 400 MG, QD, ORAL; 800 MG, QD, 600 MG, QD; 400 MG, DAILY, ORAL
     Route: 048
  3. LASIX [Concomitant]
  4. MULTIVITAMINS (ASCORBIC ACID, ERGOCALCIFEROL, FOLIC ACID, NICOTINAMIDE [Concomitant]
  5. LEVOXYL [Concomitant]
  6. ACETAMINOPHEN [Concomitant]
  7. BISMUTH SUBSALICYLATE [Concomitant]
  8. MAGNESIUM [Concomitant]
  9. CHLORPHENIRAMINE MALEATE [Concomitant]
  10. POTASSIUM CHLORIDE [Concomitant]
  11. CALCIUM [Concomitant]
  12. FOLIC ACID [Concomitant]

REACTIONS (16)
  - BALANCE DISORDER [None]
  - HEART RATE IRREGULAR [None]
  - CARDIAC FAILURE CONGESTIVE [None]
  - PAIN IN EXTREMITY [None]
  - ATRIAL FIBRILLATION [None]
  - DYSPNOEA [None]
  - ANXIETY [None]
  - CHRONIC MYELOID LEUKAEMIA [None]
  - ARTHRITIS [None]
  - NEUTROPENIA [None]
  - VOMITING [None]
  - WEIGHT INCREASED [None]
  - NASOPHARYNGITIS [None]
  - ABDOMINAL DISCOMFORT [None]
  - ABDOMINAL PAIN [None]
  - PALPITATIONS [None]
